FAERS Safety Report 14315034 (Version 1)
Quarter: 2017Q4

REPORT INFORMATION
  Report Type: Spontaneous
  Country: IT (occurrence: IT)
  Receive Date: 20171221
  Receipt Date: 20171221
  Transmission Date: 20180321
  Serious: Yes (Death, Other)
  Sender: FDA-Public Use
  Company Number: IT-TEVA-2017-IT-837663

PATIENT
  Age: 32 Year
  Sex: Female

DRUGS (1)
  1. DOXORUBICIN [Suspect]
     Active Substance: DOXORUBICIN
     Indication: LEIOMYOSARCOMA
     Route: 042

REACTIONS (7)
  - Renal failure [Fatal]
  - Hepatic function abnormal [Unknown]
  - Pyrexia [Fatal]
  - Hyperbilirubinaemia [Fatal]
  - Tumour lysis syndrome [Fatal]
  - Pancytopenia [Fatal]
  - Metastasis [Fatal]
